FAERS Safety Report 4334269-9 (Version None)
Quarter: 2004Q2

REPORT INFORMATION
  Report Type: 
  Country: None (occurrence: None)
  Receive Date: 20040405
  Receipt Date: 20040324
  Transmission Date: 20050107
  Serious: Yes (Death)
  Sender: FDA-Public Use
  Company Number: 163-20785-03110407

PATIENT
  Age: 50 Year
  Sex: Male

DRUGS (1)
  1. THALOMID [Suspect]
     Indication: MALIGNANT NEOPLASM OF RENAL PELVIS
     Dosage: 1200 MG, DAILY, ORAL
     Route: 048
     Dates: start: 20030519, end: 20030801

REACTIONS (1)
  - DEATH [None]
